FAERS Safety Report 4346049-9 (Version None)
Quarter: 2004Q2

REPORT INFORMATION
  Report Type: 
  Country: None (occurrence: None)
  Receive Date: 20040421
  Receipt Date: 20040407
  Transmission Date: 20050107
  Serious: Yes (Other)
  Sender: FDA-Public Use
  Company Number: S04-USA-02162-01

PATIENT
  Age: 52 Year
  Sex: Female

DRUGS (2)
  1. CELEXA [Suspect]
     Indication: MENOPAUSE
     Dosage: 20 MG QD PO
     Route: 048
     Dates: start: 20031101, end: 20040323
  2. PROTONIX [Suspect]
     Indication: GASTROOESOPHAGEAL REFLUX DISEASE
     Dates: end: 20040323

REACTIONS (6)
  - ECZEMA [None]
  - FATIGUE [None]
  - OEDEMA PERIPHERAL [None]
  - PAIN [None]
  - POLYMYOSITIS [None]
  - RASH PRURITIC [None]
